FAERS Safety Report 19749755 (Version 1)
Quarter: 2021Q3

REPORT INFORMATION
  Report Type: Spontaneous
  Country: US (occurrence: US)
  Receive Date: 20210826
  Receipt Date: 20210826
  Transmission Date: 20211014
  Serious: Yes (Hospitalization)
  Sender: FDA-Public Use
  Company Number: US-LUPIN PHARMACEUTICALS INC.-2021-15726

PATIENT
  Age: 4 Decade
  Sex: Male

DRUGS (2)
  1. ORITAVANCIN. [Suspect]
     Active Substance: ORITAVANCIN
     Indication: STAPHYLOCOCCAL BACTERAEMIA
     Dosage: 1200 MILLIGRAM (RECEIVED A SINGLE INFUSION)
     Route: 065
  2. VANCOMYCIN [Suspect]
     Active Substance: VANCOMYCIN
     Indication: STAPHYLOCOCCAL BACTERAEMIA
     Dosage: UNK
     Route: 042

REACTIONS (1)
  - Treatment failure [Unknown]
